FAERS Safety Report 14423679 (Version 3)
Quarter: 2018Q3

REPORT INFORMATION
  Report Type: Spontaneous
  Country: IT (occurrence: IT)
  Receive Date: 20180123
  Receipt Date: 20180830
  Transmission Date: 20181010
  Serious: Yes (Other)
  Sender: FDA-Public Use
  Company Number: IT-TEVA-2018-IT-846512

PATIENT
  Age: 60 Year
  Sex: Male

DRUGS (1)
  1. KETOPROFEN. [Suspect]
     Active Substance: KETOPROFEN
     Indication: PAIN
     Dosage: 75 MG, PRN
     Route: 048
     Dates: start: 20171005, end: 20171005

REACTIONS (6)
  - Aphasia [Recovering/Resolving]
  - Dysphagia [Recovering/Resolving]
  - Drug hypersensitivity [Recovering/Resolving]
  - Palatal oedema [Recovering/Resolving]
  - Tongue oedema [Recovering/Resolving]
  - Hypertension [Unknown]

NARRATIVE: CASE EVENT DATE: 20171006
